FAERS Safety Report 9160056 (Version 1)
Quarter: 2013Q1

REPORT INFORMATION
  Report Type: Report from Study
  Country: US (occurrence: US)
  Receive Date: 20130313
  Receipt Date: 20130313
  Transmission Date: 20140127
  Serious: Yes (Hospitalization, Other)
  Sender: FDA-Public Use
  Company Number: US-MYLANLABS-2013S1005054

PATIENT
  Age: 56 Year
  Sex: Male
  Weight: 88.32 kg

DRUGS (12)
  1. HYDROXYCHLOROQUINE SULFATE [Suspect]
     Indication: RENAL CANCER
     Route: 048
     Dates: start: 20010122, end: 20130216
  2. ALDESLEUKIN [Suspect]
     Indication: RENAL CANCER
     Dosage: 600,000 INTERNATIONAL UNITS/KG/DOSE
     Dates: start: 20130205, end: 20130208
  3. ALLEGRA [Concomitant]
     Indication: SEASONAL ALLERGY
     Route: 048
     Dates: start: 2009
  4. ATIVAN [Concomitant]
     Indication: ANXIETY
     Route: 048
     Dates: start: 201106
  5. PEPCID [Concomitant]
     Route: 048
     Dates: start: 20120328
  6. ATIVAN [Concomitant]
     Indication: INSOMNIA
     Route: 048
     Dates: start: 20130201
  7. NICOTINE TRANSDERMAL PATCH [Concomitant]
     Route: 061
     Dates: start: 20130205
  8. ZOLOFT [Concomitant]
     Route: 048
     Dates: start: 20130205
  9. LOMOTIL [Concomitant]
     Dosage: 1 TAB PO Q4HRS PRN
     Route: 048
     Dates: start: 20130205
  10. LUBRIDERM /01007601/ [Concomitant]
     Dosage: QID
     Route: 061
     Dates: start: 20130205
  11. ATARAX [Concomitant]
     Dosage: QID
     Route: 048
     Dates: start: 20130205
  12. AVELOX [Concomitant]
     Indication: PNEUMONIA
     Dosage: 7-DAY COURSE
     Route: 048

REACTIONS (1)
  - Pancreatitis acute [Not Recovered/Not Resolved]
